FAERS Safety Report 7822142-0 (Version None)
Quarter: 2011Q4

REPORT INFORMATION
  Report Type: 
  Country: None (occurrence: None)
  Receive Date: 20111018
  Receipt Date: 20110315
  Transmission Date: 20120403
  Serious: No
  Sender: FDA-Public Use
  Company Number: US-ASTRAZENECA-2011SE14892

PATIENT
  Sex: Female

DRUGS (3)
  1. SYMBICORT [Suspect]
     Dosage: 160/4.5 UG DAILY
     Route: 055
     Dates: start: 20110101, end: 20110101
  2. ADVAIR DISKUS 100/50 [Concomitant]
  3. ALBUTEROL INHALER [Concomitant]

REACTIONS (1)
  - DYSTONIA [None]
